FAERS Safety Report 25790423 (Version 1)
Quarter: 2025Q3

REPORT INFORMATION
  Report Type: Spontaneous
  Country: EU (occurrence: EU)
  Receive Date: 20250911
  Receipt Date: 20250911
  Transmission Date: 20251021
  Serious: Yes (Other)
  Sender: RANBAXY
  Company Number: EU-PHARMAMAR-2023PM000667

PATIENT
  Age: 50 Year
  Sex: Female

DRUGS (4)
  1. DOXORUBICIN HYDROCHLORIDE [Suspect]
     Active Substance: DOXORUBICIN HYDROCHLORIDE
     Indication: Ovarian epithelial cancer
     Route: 040
     Dates: start: 201704
  2. DOXORUBICIN HYDROCHLORIDE [Suspect]
     Active Substance: DOXORUBICIN HYDROCHLORIDE
     Route: 040
     Dates: start: 201710
  3. YONDELIS [Suspect]
     Active Substance: TRABECTEDIN
     Indication: Ovarian epithelial cancer
     Route: 040
     Dates: start: 201704
  4. YONDELIS [Suspect]
     Active Substance: TRABECTEDIN
     Dates: start: 201710

REACTIONS (4)
  - Thrombocytopenia [Recovered/Resolved]
  - Disease progression [Unknown]
  - Pericardial effusion [Not Recovered/Not Resolved]
  - Anaemia [Recovered/Resolved]

NARRATIVE: CASE EVENT DATE: 20170101
